FAERS Safety Report 24684089 (Version 2)
Quarter: 2025Q3

REPORT INFORMATION
  Report Type: Spontaneous
  Country: US (occurrence: US)
  Receive Date: 20241202
  Receipt Date: 20250816
  Transmission Date: 20251021
  Serious: No
  Sender: ALEXION PHARMACEUTICALS
  Company Number: US-PFIZER INC-202400298727

PATIENT
  Age: 64 Year
  Sex: Female

DRUGS (3)
  1. LYNPARZA [Suspect]
     Active Substance: OLAPARIB
  2. TUCATINIB [Suspect]
     Active Substance: TUCATINIB
     Dosage: TAKE 2 150MG TABLETS TWICE DAILY
  3. CAPECITABINE [Concomitant]
     Active Substance: CAPECITABINE
     Indication: Breast cancer female

REACTIONS (2)
  - Off label use [Unknown]
  - Product use issue [Unknown]
